FAERS Safety Report 8606162-4 (Version None)
Quarter: 2012Q3

REPORT INFORMATION
  Report Type: 
  Country: None (occurrence: None)
  Receive Date: 20120809
  Receipt Date: 20120809
  Transmission Date: 20120928
  Serious: No
  Sender: FDA-Public Use
  Company Number: None

PATIENT
  Age: 23 Month
  Sex: Male

DRUGS (1)
  1. EPIPEN JR. DEY PHARMA [Suspect]
     Indication: ANAPHYLACTIC REACTION
     Dosage: 0.15 MG PRN SQ
     Route: 058

REACTIONS (2)
  - INJECTION SITE HAEMATOMA [None]
  - NEEDLE ISSUE [None]
